FAERS Safety Report 17093781 (Version 2)
Quarter: 2019Q4

REPORT INFORMATION
  Report Type: Spontaneous
  Country: IN (occurrence: IN)
  Receive Date: 20191129
  Receipt Date: 20191204
  Transmission Date: 20200122
  Serious: Yes (Death, Hospitalization, Other)
  Sender: FDA-Public Use
  Company Number: NVSC2019IN052458

PATIENT
  Age: 2 Year
  Sex: Male

DRUGS (3)
  1. THIOTEPA. [Suspect]
     Active Substance: THIOTEPA
     Indication: CONGENITAL DYSERYTHROPOIETIC ANAEMIA
     Route: 065
  2. FLUDARABINE PHOSPHATE. [Suspect]
     Active Substance: FLUDARABINE PHOSPHATE
     Indication: CONGENITAL DYSERYTHROPOIETIC ANAEMIA
     Route: 065
  3. TREOSULFAN [Suspect]
     Active Substance: TREOSULFAN
     Indication: CONGENITAL DYSERYTHROPOIETIC ANAEMIA
     Route: 065

REACTIONS (12)
  - Hyperkalaemia [Fatal]
  - Proctitis [Unknown]
  - Pneumocystis jirovecii pneumonia [Unknown]
  - Acute kidney injury [Unknown]
  - Mucosal inflammation [Unknown]
  - Pneumonia viral [Fatal]
  - Epstein-Barr virus infection [Unknown]
  - Necrotising colitis [Fatal]
  - Pleural effusion [Fatal]
  - Lower respiratory tract infection [Unknown]
  - Adenovirus infection [Recovered/Resolved]
  - Product use in unapproved indication [Unknown]
